FAERS Safety Report 6005388-6 (Version None)
Quarter: 2008Q4

REPORT INFORMATION
  Report Type: 
  Country: None (occurrence: None)
  Receive Date: 20081216
  Receipt Date: 20081205
  Transmission Date: 20090506
  Serious: Yes (Other)
  Sender: FDA-Public Use
  Company Number: US-JNJCH-2008056850

PATIENT
  Age: 36 Year
  Sex: Male
  Weight: 117.9 kg

DRUGS (2)
  1. LISTERINE VANILLA MINT [Suspect]
     Indication: BREATH ODOUR
     Dosage: TEXT:ABOUT A CAPFUL ONCE
     Route: 048
     Dates: start: 20081204, end: 20081204
  2. ASTELIN [Concomitant]
     Indication: SEASONAL ALLERGY
     Dosage: TEXT:1 SPRAY DAILY
     Route: 065

REACTIONS (9)
  - CHEST DISCOMFORT [None]
  - DYSPNOEA [None]
  - HYPERSENSITIVITY [None]
  - LIP SWELLING [None]
  - PRURITUS [None]
  - SWELLING FACE [None]
  - SWOLLEN TONGUE [None]
  - THROAT TIGHTNESS [None]
  - VISION BLURRED [None]
